FAERS Safety Report 17447984 (Version 4)
Quarter: 2020Q2

REPORT INFORMATION
  Report Type: Report from Study
  Country: US (occurrence: US)
  Receive Date: 20200222
  Receipt Date: 20200401
  Transmission Date: 20200713
  Serious: No
  Sender: FDA-Public Use
  Company Number: NVSC2020US048025

PATIENT
  Age: 60 Year
  Sex: Female

DRUGS (1)
  1. ENTRESTO [Suspect]
     Active Substance: SACUBITRIL\VALSARTAN
     Indication: CARDIAC FAILURE CHRONIC
     Dosage: 1 DF (97 MG/103 MG), BID
     Route: 048
     Dates: start: 201909

REACTIONS (10)
  - Dehydration [Unknown]
  - Pain in extremity [Unknown]
  - Stress [Unknown]
  - Fluid retention [Unknown]
  - Arthritis [Recovering/Resolving]
  - Gout [Recovering/Resolving]
  - Joint swelling [Recovered/Resolved]
  - Weight decreased [Unknown]
  - Dyspnoea [Unknown]
  - Laboratory test abnormal [Unknown]

NARRATIVE: CASE EVENT DATE: 201910
